FAERS Safety Report 17894391 (Version 2)
Quarter: 2020Q4

REPORT INFORMATION
  Report Type: Spontaneous
  Country: US (occurrence: US)
  Receive Date: 20200615
  Receipt Date: 20201006
  Transmission Date: 20210113
  Serious: Yes (Other)
  Sender: FDA-Public Use
  Company Number: US-AUROBINDO-AUR-APL-2020-027935

PATIENT
  Sex: Female

DRUGS (1)
  1. ALENDRONATE SODIUM TABLETS [Suspect]
     Active Substance: ALENDRONATE SODIUM
     Indication: PRODUCT USED FOR UNKNOWN INDICATION
     Dosage: 70 MILLIGRAM, EVERY WEEK
     Route: 065

REACTIONS (2)
  - Foreign body in throat [Unknown]
  - Product use complaint [Unknown]
